FAERS Safety Report 6440419-0 (Version None)
Quarter: 2009Q4

REPORT INFORMATION
  Report Type: 
  Country: None (occurrence: None)
  Receive Date: 20091113
  Receipt Date: 20091113
  Transmission Date: 20100525
  Serious: Yes (Other)
  Sender: FDA-Public Use
  Company Number: US-PFIZER INC-2009236675

PATIENT
  Sex: Male
  Weight: 95 kg

DRUGS (6)
  1. LIPITOR [Suspect]
     Indication: HYPERCHOLESTEROLAEMIA
     Dosage: 20 MG, 1X/DAY
     Dates: start: 20040101
  2. LIPITOR [Suspect]
     Dosage: 40 MG, 1X/DAY
     Route: 048
     Dates: start: 20080801, end: 20090625
  3. AVODART [Concomitant]
     Dosage: UNK
  4. UROXATRAL [Concomitant]
     Dosage: 10 MG, UNK
  5. METOPROLOL [Concomitant]
  6. RAMIPRIL [Concomitant]

REACTIONS (8)
  - ARTHRALGIA [None]
  - BENIGN PROSTATIC HYPERPLASIA [None]
  - BLOOD CHOLESTEROL INCREASED [None]
  - CORONARY ARTERY OCCLUSION [None]
  - HYPERSENSITIVITY [None]
  - HYPERTENSION [None]
  - MUSCLE TIGHTNESS [None]
  - OEDEMA PERIPHERAL [None]
